FAERS Safety Report 17107169 (Version 1)
Quarter: 2019Q4

REPORT INFORMATION
  Report Type: Spontaneous
  Country: US (occurrence: US)
  Receive Date: 20191203
  Receipt Date: 20191203
  Transmission Date: 20200122
  Serious: No
  Sender: FDA-Public Use
  Company Number: US-MYLANLABS-2019M1114288

PATIENT
  Sex: Female
  Weight: 92.9 kg

DRUGS (1)
  1. ESTRADIOL TRANSDERMAL SYSTEM [Suspect]
     Active Substance: ESTRADIOL
     Indication: PRODUCT USED FOR UNKNOWN INDICATION
     Dosage: UNK UNK, BIWEEKLY (TWICE WEEKLY)
     Route: 062

REACTIONS (5)
  - Product adhesion issue [Recovered/Resolved]
  - Product quality issue [Unknown]
  - Poor quality sleep [Recovered/Resolved]
  - Feeling hot [Recovered/Resolved]
  - Hot flush [Recovered/Resolved]
